FAERS Safety Report 15671078 (Version 6)
Quarter: 2020Q4

REPORT INFORMATION
  Report Type: Spontaneous
  Country: US (occurrence: US)
  Receive Date: 20181129
  Receipt Date: 20201105
  Transmission Date: 20210113
  Serious: Yes (Hospitalization, Other)
  Sender: FDA-Public Use
  Company Number: US-SAKK-2018SA323753AA

PATIENT

DRUGS (37)
  1. FABRAZYME [Suspect]
     Active Substance: AGALSIDASE BETA
     Dosage: 75 MG, QOW
     Route: 041
     Dates: start: 20040708
  2. FLUBLOK [Concomitant]
     Active Substance: INFLUENZA A VIRUS A/CALIFORNIA/7/2009 (H1N1) RECOMBINANT HEMAGGLUTININ ANTIGEN\INFLUENZA A VIRUS A/VICTORIA/361/2011 (H3N2) RECOMBINANT HEMAGGLUTININ ANTIGEN\INFLUENZA B VIRUS B/WISCONSIN/1/2010 RECOMBINANT HEMAGGLUTININ ANTIGEN
     Dosage: UNK
     Route: 065
     Dates: start: 20180918
  3. PRILOSEC [Concomitant]
     Active Substance: OMEPRAZOLE MAGNESIUM
  4. FABRAZYME [Suspect]
     Active Substance: AGALSIDASE BETA
     Indication: FABRY^S DISEASE
     Dosage: 70 MG, QOW
     Route: 041
     Dates: start: 20040630
  5. MUCINEX [Concomitant]
     Active Substance: GUAIFENESIN
     Route: 065
  6. LEVAQUIN [Concomitant]
     Active Substance: LEVOFLOXACIN
     Route: 065
  7. ACETAMINOPHEN;DIPHENHYDRAMINE HYDROCHLORIDE [Concomitant]
     Active Substance: ACETAMINOPHEN\DIPHENHYDRAMINE HYDROCHLORIDE
     Indication: ANAPHYLACTIC REACTION
     Dosage: 50 MG
     Route: 042
     Dates: start: 20181004
  8. ASPIRIN [ACETYLSALICYLIC ACID] [Concomitant]
     Active Substance: ASPIRIN
     Dosage: 81 MG, UNK
     Route: 048
     Dates: start: 20180726
  9. DILAUDID [Concomitant]
     Active Substance: HYDROMORPHONE HYDROCHLORIDE
     Dosage: 4 MG, EVERY 4-6 HOURS
     Route: 048
     Dates: start: 20180813
  10. SYSTANE (HYPROMELLOSE 2910 (4000 MPA.S)) [Concomitant]
     Active Substance: HYPROMELLOSE 2910 (4000 MPA.S)
     Dosage: 1 DROP 4 TIMES A DAY
     Route: 065
     Dates: start: 20180712
  11. PRENATAL [ASCORBIC ACID;FERROUS FUMARATE;FOLIC ACID;RETINOL] [Concomitant]
     Dosage: 1 DOSE, QD
     Route: 048
     Dates: start: 20171005
  12. ESTRADIOL. [Concomitant]
     Active Substance: ESTRADIOL
     Dosage: 1 DOSE, QD
     Route: 048
     Dates: start: 20170927
  13. XARELTO [Concomitant]
     Active Substance: RIVAROXABAN
     Dosage: 15 MG, QD
     Route: 048
     Dates: start: 20170927
  14. DIPHENHYDRAMINE HYDROCHLORIDE. [Concomitant]
     Active Substance: DIPHENHYDRAMINE HYDROCHLORIDE
     Route: 065
  15. NORMAL SALINE [Concomitant]
     Active Substance: SODIUM CHLORIDE
     Indication: FLUSHING
     Dosage: 0.9 %
     Route: 042
     Dates: start: 20181004
  16. SHINGRIX [Concomitant]
     Active Substance: RECOMBINANT VARICELLA ZOSTER VIRUS (VZV) GLYCOPROTEIN E
     Dosage: 1 UNIT EVERY 6 MONTHS
     Route: 030
     Dates: start: 20180717
  17. LISINOPRIL. [Concomitant]
     Active Substance: LISINOPRIL
     Dosage: 10 MG, QD
     Route: 048
     Dates: start: 20170927
  18. XIIDRA [Concomitant]
     Active Substance: LIFITEGRAST
  19. TYLENOL [Concomitant]
     Active Substance: ACETAMINOPHEN
  20. FABRAZYME [Suspect]
     Active Substance: AGALSIDASE BETA
     Dosage: 75 MG, QOW
     Route: 041
  21. SOLU-MEDROL [Concomitant]
     Active Substance: METHYLPREDNISOLONE SODIUM SUCCINATE
     Dosage: 125 MG
     Route: 042
     Dates: start: 20181004
  22. IRON [Concomitant]
     Active Substance: IRON
     Dosage: 10 MG, QD
     Route: 048
     Dates: start: 20170927
  23. PRAVASTATIN. [Concomitant]
     Active Substance: PRAVASTATIN
     Route: 065
  24. PRENATAL [FOLIC ACID;IRON] [Concomitant]
  25. METOPROLOL. [Concomitant]
     Active Substance: METOPROLOL
     Dosage: 25 MG, BID
     Route: 048
     Dates: start: 20171005
  26. VITAMIN B12 [Concomitant]
     Active Substance: CYANOCOBALAMIN
     Dosage: 1000 MG, QD
     Route: 048
     Dates: start: 20171005
  27. PROTONIX [OMEPRAZOLE] [Concomitant]
     Active Substance: OMEPRAZOLE
     Dosage: 40 MG, QD
     Route: 048
     Dates: start: 20170927
  28. CORAL CALCIUM [CALCIUM] [Concomitant]
  29. GABAPENTIN. [Concomitant]
     Active Substance: GABAPENTIN
     Dosage: 300 MG; 3 TIMES A DAY
     Route: 065
     Dates: start: 20180829
  30. ISOSORBIDE MONONITRATE. [Concomitant]
     Active Substance: ISOSORBIDE MONONITRATE
     Dosage: 60 MG, QD
     Route: 048
     Dates: start: 20171005
  31. INDAPAMIDE. [Concomitant]
     Active Substance: INDAPAMIDE
     Dosage: 1.25 MG, QD
     Route: 048
     Dates: start: 20170927
  32. SODIUM CHLORIDE. [Concomitant]
     Active Substance: SODIUM CHLORIDE
     Route: 065
  33. ACETAMINOPHEN;DIPHENHYDRAMINE HYDROCHLORIDE [Concomitant]
     Active Substance: ACETAMINOPHEN\DIPHENHYDRAMINE HYDROCHLORIDE
     Indication: PREMEDICATION
     Dosage: 500 MG
     Route: 048
     Dates: start: 20181004
  34. STERILE WATER [Concomitant]
     Active Substance: WATER
     Indication: ANAPHYLACTIC REACTION
     Dosage: 12 ML
     Route: 042
     Dates: start: 20181004
  35. EPINEPHRINE. [Concomitant]
     Active Substance: EPINEPHRINE
     Indication: ANAPHYLACTIC REACTION
     Dosage: 0.3 MG
     Route: 030
     Dates: start: 20181004
  36. NORVASC [Concomitant]
     Active Substance: AMLODIPINE BESYLATE
     Dosage: 5 MG, QD
     Route: 048
     Dates: start: 20170927
  37. AMIODARONE [Concomitant]
     Active Substance: AMIODARONE
     Dosage: 200 MG, QD
     Route: 048
     Dates: start: 20170927

REACTIONS (8)
  - Diarrhoea [Unknown]
  - Abdominal pain [Unknown]
  - Fall [Unknown]
  - Skin cancer [Unknown]
  - Pneumonia [Unknown]
  - Cystitis [Unknown]
  - Atrial fibrillation [Unknown]
  - Contusion [Unknown]

NARRATIVE: CASE EVENT DATE: 20200104
